FAERS Safety Report 9929292 (Version 1)
Quarter: 2014Q1

REPORT INFORMATION
  Report Type: Spontaneous
  Country: AU (occurrence: None)
  Receive Date: 20140221
  Receipt Date: 20140221
  Transmission Date: 20141002
  Serious: Yes (Other)
  Sender: FDA-Public Use
  Company Number: 2014AP001341

PATIENT
  Age: 65 Year
  Sex: Female

DRUGS (3)
  1. CIPROFLOXACIN [Suspect]
     Indication: URINARY TRACT INFECTION
     Dates: start: 20131204, end: 20131226
  2. ENDONE (OXYCODONE HYDROCHLORIDE) [Concomitant]
  3. CIPROFLOXACIN (CIPROFLOXACIN) [Concomitant]

REACTIONS (8)
  - Pruritus [None]
  - Abdominal distension [None]
  - Erythema [None]
  - Flushing [None]
  - Local swelling [None]
  - Pulmonary thrombosis [None]
  - Dizziness [None]
  - Bone pain [None]
